FAERS Safety Report 22248096 (Version 1)
Quarter: 2023Q2

REPORT INFORMATION
  Report Type: Spontaneous
  Country: US (occurrence: US)
  Receive Date: 20230425
  Receipt Date: 20230425
  Transmission Date: 20230721
  Serious: Yes (Hospitalization)
  Sender: FDA-Public Use
  Company Number: US-STRIDES ARCOLAB LIMITED-2022SP016950

PATIENT
  Age: 27 Year
  Sex: Male

DRUGS (31)
  1. LORAZEPAM [Suspect]
     Active Substance: LORAZEPAM
     Indication: Status epilepticus
     Dosage: UNK
     Route: 065
  2. LEVETIRACETAM [Suspect]
     Active Substance: LEVETIRACETAM
     Indication: Status epilepticus
     Dosage: 4000 MILLIGRAM/DAY
     Route: 065
  3. LEVETIRACETAM [Suspect]
     Active Substance: LEVETIRACETAM
     Dosage: 6000 MILLIGRAM/DAY
     Route: 065
  4. LEVETIRACETAM [Suspect]
     Active Substance: LEVETIRACETAM
     Dosage: 8000 MILLIGRAM/DAY
     Route: 065
  5. PHENOBARBITAL [Suspect]
     Active Substance: PHENOBARBITAL
     Indication: Status epilepticus
     Dosage: 300 MILLIGRAM/DAY
     Route: 065
  6. PHENOBARBITAL [Suspect]
     Active Substance: PHENOBARBITAL
     Dosage: 600 MILLIGRAM/DAY
     Route: 065
  7. TOPIRAMATE [Suspect]
     Active Substance: TOPIRAMATE
     Indication: Status epilepticus
     Dosage: UNK
     Route: 065
  8. PHENYTOIN [Suspect]
     Active Substance: PHENYTOIN
     Indication: Status epilepticus
     Dosage: 450 MILLIGRAM/DAY
     Route: 065
  9. PHENYTOIN [Suspect]
     Active Substance: PHENYTOIN
     Dosage: 600 MILLIGRAM/DAY
     Route: 065
  10. PHENYTOIN [Suspect]
     Active Substance: PHENYTOIN
     Dosage: 900 MILLIGRAM/DAY
     Route: 065
  11. LACOSAMIDE [Suspect]
     Active Substance: LACOSAMIDE
     Indication: Status epilepticus
     Dosage: 200 MILLIGRAM/DAY
     Route: 065
  12. LACOSAMIDE [Suspect]
     Active Substance: LACOSAMIDE
     Dosage: 300 MILLIGRAM/DAY
     Route: 065
  13. LACOSAMIDE [Suspect]
     Active Substance: LACOSAMIDE
     Dosage: 400 MILLIGRAM/DAY
     Route: 065
  14. CLOBAZAM [Suspect]
     Active Substance: CLOBAZAM
     Indication: Status epilepticus
     Dosage: 10 MILLIGRAM/DAY
     Route: 065
  15. CLOBAZAM [Suspect]
     Active Substance: CLOBAZAM
     Dosage: 20 MILLIGRAM/DAY
     Route: 065
  16. CLOBAZAM [Suspect]
     Active Substance: CLOBAZAM
     Dosage: 40 MILLIGRAM/DAY
     Route: 065
  17. ZONISAMIDE [Suspect]
     Active Substance: ZONISAMIDE
     Indication: Status epilepticus
     Dosage: 400 MILLIGRAM/DAY
     Route: 065
  18. ZONISAMIDE [Suspect]
     Active Substance: ZONISAMIDE
     Dosage: 600 MILLIGRAM/DAY
     Route: 065
  19. PREGABALIN [Suspect]
     Active Substance: PREGABALIN
     Indication: Status epilepticus
     Dosage: 300 MILLIGRAM/DAY
     Route: 065
  20. PERAMPANEL [Suspect]
     Active Substance: PERAMPANEL
     Indication: Status epilepticus
     Dosage: 6 MILLIGRAM/DAY
     Route: 065
  21. VANCOMYCIN [Concomitant]
     Active Substance: VANCOMYCIN
     Indication: Evidence based treatment
     Dosage: UNK
     Route: 065
  22. CEFTRIAXONE [Concomitant]
     Active Substance: CEFTRIAXONE
     Indication: Evidence based treatment
     Dosage: UNK
     Route: 065
  23. ACYCLOVIR [Concomitant]
     Active Substance: ACYCLOVIR
     Indication: Evidence based treatment
     Dosage: UNK
     Route: 065
  24. METHYLPREDNISOLONE [Concomitant]
     Active Substance: METHYLPREDNISOLONE
     Indication: Product used for unknown indication
     Dosage: 1 GRAM PER DAY
     Route: 065
  25. PROPOFOL [Concomitant]
     Active Substance: PROPOFOL
     Indication: Induction of anaesthesia
     Dosage: 80 MICROGRAM/KILOGRAM PER MIN
     Route: 065
  26. MIDAZOLAM [Concomitant]
     Active Substance: MIDAZOLAM
     Indication: Induction of anaesthesia
     Dosage: 0.6 MILLIGRAM/KILOGRAM PER HOUR
     Route: 065
  27. MIDAZOLAM [Concomitant]
     Active Substance: MIDAZOLAM
     Dosage: 18 MILLIGRAM/KILOGRAM PER 1 HOUR
     Route: 065
  28. KETAMINE [Concomitant]
     Active Substance: KETAMINE
     Indication: Induction of anaesthesia
     Dosage: 2 MILLIGRAM/KILOGRAM PER HOUR
     Route: 065
  29. PENTOBARBITAL [Concomitant]
     Active Substance: PENTOBARBITAL
     Indication: Induction of anaesthesia
     Dosage: 1 MILLIGRAM/KILOGRAM PER HOUR
     Route: 065
  30. ISOFLURANE [Concomitant]
     Active Substance: ISOFLURANE
     Indication: Induction of anaesthesia
     Dosage: UNK, (17% MINIMUM INHIBITORY CONCENTRATION)
     Route: 065
  31. ISOFLURANE [Concomitant]
     Active Substance: ISOFLURANE
     Dosage: UNK
     Route: 065

REACTIONS (2)
  - Drug ineffective [Unknown]
  - Off label use [Unknown]
